FAERS Safety Report 4378203-4 (Version None)
Quarter: 2004Q2

REPORT INFORMATION
  Report Type: 
  Country: None (occurrence: None)
  Receive Date: 20040609
  Receipt Date: 20040525
  Transmission Date: 20050107
  Serious: Yes (Hospitalization)
  Sender: FDA-Public Use
  Company Number: US_0405103225

PATIENT
  Age: 46 Year
  Sex: Male
  Weight: 85 kg

DRUGS (19)
  1. PEMETREXED [Suspect]
     Indication: SMALL CELL LUNG CANCER STAGE UNSPECIFIED
     Dosage: 1000 MG
     Dates: start: 20040505
  2. CISPLATIN [Suspect]
     Indication: SMALL CELL LUNG CANCER STAGE UNSPECIFIED
     Dosage: 150 MG
     Dates: start: 20040505
  3. FOLIC ACID [Concomitant]
  4. MILK OF MAGNESIA TAB [Concomitant]
  5. MYLANTA [Concomitant]
  6. OXYFAST (OXYCODONE HYDROCHLORIDE) [Concomitant]
  7. DURAGESIC [Concomitant]
  8. APO-METOPROLOL (METOPROLOL TARTRATE) [Concomitant]
  9. OXYCONTIN [Concomitant]
  10. CATAPRESSANT TTS (CLONIDINE HYDROCHLORIDE) [Concomitant]
  11. DECADRON [Concomitant]
  12. BACLOFEN [Concomitant]
  13. AMOXICILLIN [Concomitant]
  14. ATIVAN [Concomitant]
  15. LASIX [Concomitant]
  16. SENNA [Concomitant]
  17. SURFAK (DOCUSATE CALCIUM) [Concomitant]
  18. DUROLAX (BISACODYL) [Concomitant]
  19. PROTONIX [Concomitant]

REACTIONS (24)
  - ABDOMINAL DISTENSION [None]
  - ABDOMINAL PAIN [None]
  - ALANINE AMINOTRANSFERASE INCREASED [None]
  - ANOREXIA [None]
  - ASPARTATE AMINOTRANSFERASE INCREASED [None]
  - ATELECTASIS [None]
  - BLOOD ALKALINE PHOSPHATASE INCREASED [None]
  - BLOOD LACTATE DEHYDROGENASE INCREASED [None]
  - CULTURE URINE POSITIVE [None]
  - ENTEROCOCCAL INFECTION [None]
  - HAEMATOCRIT DECREASED [None]
  - HYPOVOLAEMIA [None]
  - ILEUS [None]
  - INTESTINAL DILATATION [None]
  - MALIGNANT NEOPLASM PROGRESSION [None]
  - MALNUTRITION [None]
  - MASS [None]
  - MOTION SICKNESS [None]
  - NEUTROPHIL PERCENTAGE INCREASED [None]
  - PITTING OEDEMA [None]
  - PLATELET COUNT DECREASED [None]
  - PULMONARY HILUM MASS [None]
  - VOMITING [None]
  - WHITE BLOOD CELL COUNT INCREASED [None]
